FAERS Safety Report 4832303-0 (Version None)
Quarter: 2005Q4

REPORT INFORMATION
  Report Type: 
  Country: None (occurrence: None)
  Receive Date: 20051116
  Receipt Date: 20051116
  Transmission Date: 20060501
  Serious: Yes (Other)
  Sender: FDA-Public Use
  Company Number: None

PATIENT
  Age: 33 Year
  Sex: Female

DRUGS (1)
  1. ISOVUE-300 [Suspect]
     Dosage: 130 ML
     Dates: start: 20050707

REACTIONS (3)
  - EYELID OEDEMA [None]
  - THROAT IRRITATION [None]
  - URTICARIA [None]
